FAERS Safety Report 12901291 (Version 1)
Quarter: 2016Q4

REPORT INFORMATION
  Report Type: Spontaneous
  Country: US (occurrence: US)
  Receive Date: 20161101
  Receipt Date: 20161101
  Transmission Date: 20170207
  Serious: No
  Sender: FDA-Public Use
  Company Number: US-009507513-1610USA016933

PATIENT
  Sex: Female

DRUGS (1)
  1. NEXPLANON [Suspect]
     Active Substance: ETONOGESTREL
     Indication: CONTRACEPTION
     Dosage: ONE INSERTION, DURATION: REMAINED IN THE PATIENT?S ARM FOR A YEAR AND A HALF
     Route: 059

REACTIONS (2)
  - Device breakage [Recovered/Resolved]
  - Medical device discomfort [Recovered/Resolved]
